FAERS Safety Report 8946840 (Version 1)
Quarter: 2012Q4

REPORT INFORMATION
  Report Type: 
  Country: US (occurrence: US)
  Receive Date: 20121205
  Receipt Date: 20121205
  Transmission Date: 20130627
  Serious: Yes (Other)
  Sender: FDA-Public Use
  Company Number: CHPA2012US024308

PATIENT
  Age: 83 Year
  Sex: Male

DRUGS (1)
  1. MAALOX ADV MAXIMUM STRENGTH ANTACID/ANTIGAS CHEWABLE [Suspect]
     Indication: HIATUS HERNIA
     Dosage: Unk, PRN
     Route: 048
     Dates: start: 2002

REACTIONS (2)
  - Hiatus hernia [Not Recovered/Not Resolved]
  - Off label use [Unknown]
